FAERS Safety Report 16155932 (Version 3)
Quarter: 2019Q2

REPORT INFORMATION
  Report Type: Report from Study
  Country: DE (occurrence: DE)
  Receive Date: 20190404
  Receipt Date: 20190510
  Transmission Date: 20190711
  Serious: Yes (Hospitalization)
  Sender: FDA-Public Use
  Company Number: DE-ROCHE-2293051

PATIENT
  Age: 71 Year
  Sex: Male
  Weight: 75 kg

DRUGS (10)
  1. RITUXIMAB. [Suspect]
     Active Substance: RITUXIMAB
     Indication: MANTLE CELL LYMPHOMA
     Dosage: INDUCTION CYCLE 2?DATE OF MOST RECENT DOSE OF RITUXIMAB PRIOR TO ONSET OF SAE: 23/MAR/2019 (697.5 MG
     Route: 042
     Dates: start: 20190226
  2. VINCRISTINE [Suspect]
     Active Substance: VINCRISTINE
     Indication: MANTLE CELL LYMPHOMA
     Dosage: DATE OF MOST RECENT DOSE OF VINCRISTINE PRIOR TO ONSET OF SAE: 27/FEB/2019 (2000 MG)?INDUCTION TREAT
     Route: 065
     Dates: start: 20190227
  3. LIPEGFILGRASTIM [Concomitant]
     Active Substance: LIPEGFILGRASTIM
     Indication: PROPHYLAXIS
     Route: 065
     Dates: start: 20190324, end: 20190324
  4. ACICLOVIR [Concomitant]
     Active Substance: ACYCLOVIR
     Indication: PROPHYLAXIS
     Route: 065
     Dates: start: 20190225
  5. DEXAMETHASONE. [Suspect]
     Active Substance: DEXAMETHASONE
     Indication: MANTLE CELL LYMPHOMA
     Dosage: DATE OF MOST RECENT DOSE OF CYTARABINE PRIOR TO ONSET OF SAE: 23/MAR/2019 (80 MG)?INDUCTION TREATMEN
     Route: 065
     Dates: start: 20190320
  6. PREDNISONE. [Suspect]
     Active Substance: PREDNISONE
     Indication: MANTLE CELL LYMPHOMA
     Dosage: DATE OF MOST RECENT DOSE OF PREDNISONE PRIOR TO ONSET OF SAE: 03/MAR/2019 (500 MG)?INDUCTION TREATME
     Route: 065
     Dates: start: 20190227
  7. CYCLOPHOSPHAMIDE. [Suspect]
     Active Substance: CYCLOPHOSPHAMIDE
     Indication: MANTLE CELL LYMPHOMA
     Dosage: DATE OF MOST RECENT DOSE OF CYCLOPHOSPHAMIDE PRIOR TO ONSET OF SAE: 27/FEB/2019 (1395 MG)?INDUCTION
     Route: 065
     Dates: start: 20190227
  8. DOXORUBICIN [Suspect]
     Active Substance: DOXORUBICIN
     Indication: MANTLE CELL LYMPHOMA
     Dosage: DATE OF MOST RECENT DOSE OF DOXORUBICIN PRIOR TO ONSET OF SAE: 27/FEB/2019 (93 MG)?INDUCTION TREATME
     Route: 065
     Dates: start: 20190227
  9. EUTHYROX [Concomitant]
     Active Substance: LEVOTHYROXINE SODIUM
     Indication: THYROIDECTOMY
     Route: 065
     Dates: start: 2000
  10. CYTARABINE. [Suspect]
     Active Substance: CYTARABINE
     Indication: MANTLE CELL LYMPHOMA
     Dosage: DATE OF MOST RECENT DOSE OF CYTARABINE PRIOR TO ONSET OF SAE: 21/MAR/2019 (1860 MG)?INDUCTION TREATM
     Route: 065
     Dates: start: 20190321

REACTIONS (4)
  - Escherichia sepsis [Recovered/Resolved]
  - Cytopenia [Not Recovered/Not Resolved]
  - Pyrexia [Not Recovered/Not Resolved]
  - Infectious pleural effusion [Unknown]

NARRATIVE: CASE EVENT DATE: 20190325
